FAERS Safety Report 6753169-8 (Version None)
Quarter: 2010Q2

REPORT INFORMATION
  Report Type: 
  Country: None (occurrence: None)
  Receive Date: 20100603
  Receipt Date: 20100526
  Transmission Date: 20101027
  Serious: Yes (Other)
  Sender: FDA-Public Use
  Company Number: JP-NOVOPROD-309136

PATIENT
  Age: 4 Week
  Sex: Male

DRUGS (2)
  1. NOVOLIN R [Suspect]
     Indication: ILL-DEFINED DISORDER
     Dosage: /IV
     Route: 042
     Dates: start: 20100419, end: 20100419
  2. NOVOLIN R [Suspect]
     Dosage: UNK
     Dates: start: 20100506

REACTIONS (2)
  - BLOOD PRESSURE DECREASED [None]
  - ERYTHEMA [None]
